FAERS Safety Report 20252124 (Version 3)
Quarter: 2022Q1

REPORT INFORMATION
  Report Type: Spontaneous
  Country: DE (occurrence: DE)
  Receive Date: 20211229
  Receipt Date: 20220201
  Transmission Date: 20220423
  Serious: Yes (Death, Hospitalization)
  Sender: FDA-Public Use
  Company Number: DE-CELLTRION INC.-2021DE017823

PATIENT

DRUGS (5)
  1. RITUXIMAB [Suspect]
     Active Substance: RITUXIMAB
     Indication: Haemophagocytic lymphohistiocytosis
     Route: 065
  2. DEXAMETHASONE [Suspect]
     Active Substance: DEXAMETHASONE
     Indication: Haemophagocytic lymphohistiocytosis
     Route: 065
  3. NOREPINEPHRINE [Concomitant]
     Active Substance: NOREPINEPHRINE
  4. NOREPINEPHRINE [Concomitant]
     Active Substance: NOREPINEPHRINE
     Dosage: (0.7 ?G/KG/MIN) AFTER 24 H AND REDUCTION AFTER 48 H (0.55 ?G/KG/MIN)
  5. GANCICLOVIR [Concomitant]
     Active Substance: GANCICLOVIR
     Indication: Haemophagocytic lymphohistiocytosis

REACTIONS (3)
  - Disease recurrence [Fatal]
  - Bacterial sepsis [Fatal]
  - Off label use [Unknown]
